FAERS Safety Report 17088963 (Version 1)
Quarter: 2019Q4

REPORT INFORMATION
  Report Type: Report from Study
  Country: US (occurrence: US)
  Receive Date: 20191128
  Receipt Date: 20191128
  Transmission Date: 20200122
  Serious: Yes (Hospitalization, Other)
  Sender: FDA-Public Use
  Company Number: US-TAKEDA-2018TUS028662

PATIENT
  Sex: Female

DRUGS (1)
  1. PONATINIB [Suspect]
     Active Substance: PONATINIB
     Indication: ACUTE LYMPHOCYTIC LEUKAEMIA
     Dosage: 30 MILLIGRAM, QD
     Route: 048
     Dates: start: 20180418

REACTIONS (11)
  - Tooth loss [Unknown]
  - Pneumonia [Not Recovered/Not Resolved]
  - Scab [Unknown]
  - Seasonal allergy [Unknown]
  - Chronic obstructive pulmonary disease [Not Recovered/Not Resolved]
  - Alopecia [Unknown]
  - Pulmonary fibrosis [Not Recovered/Not Resolved]
  - Dysphagia [Not Recovered/Not Resolved]
  - Fall [Not Recovered/Not Resolved]
  - Pelvic fracture [Not Recovered/Not Resolved]
  - Malaise [Unknown]
